FAERS Safety Report 8890028 (Version 2)
Quarter: 2012Q4

REPORT INFORMATION
  Report Type: Report from Study
  Country: AT (occurrence: AT)
  Receive Date: 20121107
  Receipt Date: 20121115
  Transmission Date: 20130627
  Serious: Yes (Hospitalization, Other)
  Sender: FDA-Public Use
  Company Number: AT-SANOFI-AVENTIS-2012SA079999

PATIENT
  Age: 57 Year
  Sex: Male
  Weight: 87 kg

DRUGS (12)
  1. DOCETAXEL [Suspect]
     Indication: NON-SMALL CELL LUNG CANCER STAGE IV
     Dosage: day 1 of 21 day cycle
     Route: 042
     Dates: start: 20121018
  2. DOCETAXEL [Suspect]
     Indication: NON-SMALL CELL LUNG CANCER STAGE IV
     Route: 042
     Dates: start: 20120927, end: 20120927
  3. BLINDED THERAPY [Suspect]
     Indication: NON-SMALL CELL LUNG CANCER STAGE IV
     Dosage: over 60 minutes, day 1 of 21 day cycle
     Route: 042
     Dates: start: 20121018
  4. BLINDED THERAPY [Suspect]
     Indication: NON-SMALL CELL LUNG CANCER STAGE IV
     Route: 042
     Dates: start: 20120927, end: 20120927
  5. LISINOPRIL [Concomitant]
     Indication: HYPERTENSION
     Dates: start: 20120816
  6. MOVICOL [Concomitant]
     Indication: CONSTIPATION
     Dates: start: 20120816
  7. PANTOPRAZOLE [Concomitant]
     Indication: PROPHYLAXIS
     Dates: start: 20120906
  8. LACTULOSE [Concomitant]
     Indication: CONSTIPATION
  9. TRITTICO [Concomitant]
     Indication: DEPRESSION
     Dates: start: 20121016
  10. LEXOTANIL [Concomitant]
     Indication: DEPRESSION
     Dates: start: 20121016
  11. NOVALGIN [Concomitant]
     Indication: PAIN
     Dates: start: 20120818
  12. CLAVAMOX [Concomitant]
     Indication: PLEURITIS
     Dates: start: 20121018

REACTIONS (1)
  - Depression [Not Recovered/Not Resolved]
